FAERS Safety Report 18772837 (Version 4)
Quarter: 2021Q1

REPORT INFORMATION
  Report Type: Spontaneous
  Country: US (occurrence: US)
  Receive Date: 20210121
  Receipt Date: 20210217
  Transmission Date: 20210419
  Serious: Yes (Other)
  Sender: FDA-Public Use
  Company Number: ALC2021US000709

PATIENT
  Age: 70 Year
  Sex: Female
  Weight: 54 kg

DRUGS (11)
  1. EYSUVIS [Suspect]
     Active Substance: LOTEPREDNOL ETABONATE
     Indication: LACRIMATION INCREASED
     Dosage: 1 DROP, 4X/DAY, IN EACH EYE, FOR THE FIRST 3 DAYS
     Route: 047
     Dates: start: 20201215, end: 20201217
  2. EYSUVIS [Suspect]
     Active Substance: LOTEPREDNOL ETABONATE
     Dosage: 1 DROP, 3X/DAY, IN EACH EYE
     Route: 047
  3. EYSUVIS [Suspect]
     Active Substance: LOTEPREDNOL ETABONATE
     Dosage: 2 DROPS
     Route: 047
     Dates: start: 20201218, end: 20201218
  4. AMLODIPINE [Concomitant]
     Active Substance: AMLODIPINE BESYLATE
     Dosage: 7.5 MG
     Route: 065
  5. PATADAY [Suspect]
     Active Substance: OLOPATADINE HYDROCHLORIDE
     Indication: DRY EYE
     Dosage: UNK
     Route: 047
     Dates: start: 2020
  6. XIIDRA [Suspect]
     Active Substance: LIFITEGRAST
     Indication: DRY EYE
     Dosage: UNK
     Route: 047
     Dates: start: 2019
  7. EYSUVIS [Suspect]
     Active Substance: LOTEPREDNOL ETABONATE
     Dosage: 1 DROP, 2X/DAY, IN EACH EYE
     Route: 047
  8. AMLODIPINE [Concomitant]
     Active Substance: AMLODIPINE BESYLATE
     Indication: HYPERTENSION
     Dosage: 5 MG
     Route: 065
     Dates: start: 20210118
  9. EYSUVIS [Suspect]
     Active Substance: LOTEPREDNOL ETABONATE
     Dosage: 1 DROP, 3X/DAY, IN EACH EYE,
     Route: 047
  10. EYSUVIS [Suspect]
     Active Substance: LOTEPREDNOL ETABONATE
     Dosage: 1 DROP, 4X/DAY, IN EACH EYE
     Route: 047
     Dates: end: 20201217
  11. EYSUVIS [Suspect]
     Active Substance: LOTEPREDNOL ETABONATE
     Dosage: 1 DROP, 2X/DAY, IN EACH EYE
     Route: 047

REACTIONS (7)
  - Posterior capsule opacification [Unknown]
  - Off label use [Unknown]
  - Drug ineffective [Unknown]
  - Ocular discomfort [Recovered/Resolved]
  - Visual impairment [Unknown]
  - Product dose omission issue [Unknown]
  - Lacrimation increased [Unknown]

NARRATIVE: CASE EVENT DATE: 2019
